FAERS Safety Report 15469544 (Version 2)
Quarter: 2018Q4

REPORT INFORMATION
  Report Type: Report from Study
  Country: NL (occurrence: NL)
  Receive Date: 20181005
  Receipt Date: 20181015
  Transmission Date: 20190205
  Serious: Yes (Hospitalization)
  Sender: FDA-Public Use
  Company Number: NL-JNJFOC-20180931503

PATIENT
  Age: 23 Year
  Sex: Female

DRUGS (2)
  1. USTEKINUMAB [Suspect]
     Active Substance: USTEKINUMAB
     Indication: CROHN^S DISEASE
     Route: 058
     Dates: start: 20180105
  2. THIOSIX [Concomitant]
     Active Substance: THIOGUANINE ANHYDROUS
     Indication: CROHN^S DISEASE
     Route: 048

REACTIONS (5)
  - Abdominal wall abscess [Recovered/Resolved]
  - Ileostomy closure [Recovering/Resolving]
  - Procedural site reaction [Not Recovered/Not Resolved]
  - Pyrexia [Recovering/Resolving]
  - Abdominal pain [Recovering/Resolving]

NARRATIVE: CASE EVENT DATE: 20180824
